FAERS Safety Report 25047962 (Version 2)
Quarter: 2025Q1

REPORT INFORMATION
  Report Type: Report from Study
  Country: CO (occurrence: CO)
  Receive Date: 20250306
  Receipt Date: 20250314
  Transmission Date: 20250409
  Serious: Yes (Hospitalization)
  Sender: ABBVIE
  Company Number: CO-ABBVIE-6164663

PATIENT
  Age: 50 Year
  Sex: Male

DRUGS (1)
  1. SKYRIZI [Suspect]
     Active Substance: RISANKIZUMAB-RZAA
     Indication: Psoriasis
     Route: 058
     Dates: start: 20211007, end: 20241128

REACTIONS (4)
  - Limb injury [Recovered/Resolved]
  - Erythema [Unknown]
  - Inflammation [Unknown]
  - Cellulitis [Unknown]

NARRATIVE: CASE EVENT DATE: 20250213
